FAERS Safety Report 9348850 (Version 1)
Quarter: 2013Q2

REPORT INFORMATION
  Report Type: Spontaneous
  Country: FR (occurrence: FR)
  Receive Date: 20130614
  Receipt Date: 20130614
  Transmission Date: 20140414
  Serious: Yes (Other)
  Sender: FDA-Public Use
  Company Number: FR-TEVA-412200ISR

PATIENT
  Sex: Male

DRUGS (3)
  1. FUROSEMIDE TEVA 40 MG, COMPRIME SECABLE [Suspect]
     Indication: OEDEMA
     Dosage: 3 DOSAGE FORMS DAILY;
     Route: 048
  2. ANTICOAGULANT [Concomitant]
  3. LASILIX [Concomitant]

REACTIONS (3)
  - Oedema genital [Not Recovered/Not Resolved]
  - Fatigue [Not Recovered/Not Resolved]
  - Mental disability [Recovering/Resolving]
